FAERS Safety Report 10396193 (Version 1)
Quarter: 2014Q1

REPORT INFORMATION
  Report Type: Spontaneous
  Country: US (occurrence: None)
  Receive Date: 20130724
  Receipt Date: 20130724
  Transmission Date: 20141002
  Serious: Yes (Other)
  Sender: FDA-Public Use
  Company Number: PHEH2011US012806

PATIENT
  Age: 77 Year
  Sex: Male
  Weight: 85.7 kg

DRUGS (20)
  1. GLEEVEC (IMATINIB) UNKNOWN [Suspect]
     Indication: SOFT TISSUE CANCER
     Route: 048
     Dates: start: 20111209
  2. MICARDIS (TELMISARTAN) [Concomitant]
  3. CRESTOR (ROSUVASTATIN CALCIUM) [Concomitant]
  4. NITROGLYCERIN (GLYCERYL TRINITRATE) [Concomitant]
  5. ISOSORB MONO (ISOSORBIDE MONONTRATE) [Concomitant]
  6. ASPIRIN (ACETYLSALICYLIC ACID) [Concomitant]
  7. PLAVIX (CLOPIDOGREL SULFATE) [Concomitant]
  8. DEXLANSOPRAZOLE [Concomitant]
  9. FLECTOR (DICLOFENAC SODIUM) [Concomitant]
  10. PROSTATE 2.3 (COLECALCIFEROL, GLYCINE MAX EXTRACT, LYCOPENE, SELENOMETHIONINE, TOCOPHEROLS MIXED) [Concomitant]
  11. OCUVITE (ASCORBIC ACID, RETINOL, TOCOPHEROL) [Concomitant]
  12. RED YEAST RICE [Concomitant]
  13. COQ10 (UBIDECARENONE) [Concomitant]
  14. CALCIUM [Concomitant]
  15. ONE A DAY (CYANOCOBALAMIN, ERGOCALCIFEROL, NCOTINAMIDE, PYRIDOXINE HYDROCHLORIDE, RETINOL, RIBOFLAVIN, SODIUM ASCORBATE, THIAMINE MONONITRATE) [Concomitant]
  16. OSTEO BI-FLEX (CHONDROITIN SULFATE, GLUCOSAMINE HYDROCHLORIDE) [Concomitant]
  17. NAPROXEN [Concomitant]
  18. FENTANYL [Concomitant]
  19. REGLAN (METOCLOPRAMIDE HYDROCHLORIDE) [Concomitant]
  20. ZOFRAN (ONDANSETRON HYDROCHLORIDE) [Concomitant]

REACTIONS (13)
  - Neoplasm progression [None]
  - Back pain [None]
  - Rash [None]
  - Abdominal pain [None]
  - Bone pain [None]
  - Fatigue [None]
  - Blood pressure diastolic decreased [None]
  - Malaise [None]
  - Muscular weakness [None]
  - Nausea [None]
  - Chills [None]
  - Tremor [None]
  - Malignant neoplasm progression [None]
